FAERS Safety Report 14754558 (Version 1)
Quarter: 2018Q2

REPORT INFORMATION
  Report Type: Spontaneous
  Country: NO (occurrence: NO)
  Receive Date: 20180413
  Receipt Date: 20180413
  Transmission Date: 20180711
  Serious: Yes (Hospitalization)
  Sender: FDA-Public Use
  Company Number: NO-ASTRAZENECA-2018SE31039

PATIENT
  Age: 53 Year
  Sex: Female

DRUGS (1)
  1. ALVESCO [Suspect]
     Active Substance: CICLESONIDE
     Indication: ASTHMA
     Dosage: ONE INHALATION IN THE MORNING
     Route: 055
     Dates: start: 20180227, end: 20180304

REACTIONS (6)
  - Throat tightness [Not Recovered/Not Resolved]
  - Asthma [Unknown]
  - Nasopharyngitis [Unknown]
  - Dysphagia [Not Recovered/Not Resolved]
  - Throat irritation [Not Recovered/Not Resolved]
  - Pharyngitis [Not Recovered/Not Resolved]
